FAERS Safety Report 14895076 (Version 5)
Quarter: 2018Q2

REPORT INFORMATION
  Report Type: Spontaneous
  Country: IE (occurrence: IE)
  Receive Date: 20180515
  Receipt Date: 20180629
  Transmission Date: 20180711
  Serious: Yes (Other)
  Sender: FDA-Public Use
  Company Number: IE-ASTRAZENECA-2018SE61589

PATIENT
  Age: 16948 Day
  Sex: Male

DRUGS (3)
  1. LOSEC [Suspect]
     Active Substance: OMEPRAZOLE
     Dosage: 20 UNKNOWN
     Route: 048
     Dates: start: 20160117, end: 20180412
  2. SEROQUEL XR [Suspect]
     Active Substance: QUETIAPINE FUMARATE
     Indication: CANDIDA INFECTION
     Dosage: 50 UNKNOWN
     Route: 048
     Dates: start: 20160117, end: 20180226
  3. SEROQUEL XR [Suspect]
     Active Substance: QUETIAPINE FUMARATE
     Indication: SLEEP DISORDER
     Dosage: 50 UNKNOWN
     Route: 048
     Dates: start: 20160117, end: 20180226

REACTIONS (15)
  - Balanitis candida [Unknown]
  - Paronychia [Unknown]
  - Off label use [Unknown]
  - Product use in unapproved indication [Unknown]
  - Fungal infection [Unknown]
  - Red blood cell count increased [Recovered/Resolved]
  - Haematocrit increased [Recovered/Resolved]
  - Candida infection [Unknown]
  - Oropharyngeal pain [Unknown]
  - Weight increased [Unknown]
  - Haemoglobin increased [Recovered/Resolved]
  - Bacterial infection [Unknown]
  - Lymphocytosis [Recovered/Resolved]
  - Fatigue [Recovered/Resolved]
  - Hyperhidrosis [Unknown]

NARRATIVE: CASE EVENT DATE: 20160117
